FAERS Safety Report 11302740 (Version 1)
Quarter: 2015Q3

REPORT INFORMATION
  Report Type: Spontaneous
  Country: None (occurrence: None)
  Receive Date: 20150723
  Receipt Date: 20150723
  Transmission Date: 20151125
  Serious: Yes (Other)
  Sender: FDA-Public Use
  Company Number: None

PATIENT
  Age: 22 Year
  Sex: Female
  Weight: 65.77 kg

DRUGS (2)
  1. WELLBUTRIN SR [Suspect]
     Active Substance: BUPROPION HYDROCHLORIDE
     Indication: DEPRESSION
     Route: 048
  2. ATIVAN [Concomitant]
     Active Substance: LORAZEPAM

REACTIONS (12)
  - Irritability [None]
  - Product substitution issue [None]
  - Bladder disorder [None]
  - Dizziness [None]
  - Migraine [None]
  - Pollakiuria [None]
  - Product quality issue [None]
  - Cold sweat [None]
  - Hunger [None]
  - Restless legs syndrome [None]
  - Bedridden [None]
  - Weight increased [None]
